FAERS Safety Report 11080070 (Version 1)
Quarter: 2015Q2

REPORT INFORMATION
  Report Type: Spontaneous
  Country: BR (occurrence: BR)
  Receive Date: 20150430
  Receipt Date: 20150430
  Transmission Date: 20150821
  Serious: Yes (Other)
  Sender: FDA-Public Use
  Company Number: BR-PFIZER INC-2015145845

PATIENT
  Age: 69 Year
  Sex: Female
  Weight: 68 kg

DRUGS (5)
  1. VITAMIN B [Concomitant]
     Active Substance: VITAMIN B
     Dosage: 1 TABLET (UNSPECIFIED DOSE), DAILY
     Dates: start: 201502
  2. DORMONID [Concomitant]
     Active Substance: MIDAZOLAM MALEATE
     Indication: SLEEP DISORDER
     Dosage: 1 TABLET (UNSPECIFIED DOSE), 1X/DAY (AT NIGHT)
     Dates: start: 2005
  3. ARISTAB [Concomitant]
     Indication: FEAR
     Dosage: 0.5 TABLET (UNSPECIFIED DOSE), DAILY
     Dates: start: 2013
  4. RIVOTRIL [Concomitant]
     Active Substance: CLONAZEPAM
     Indication: NERVOUSNESS
     Dosage: UNK
     Dates: start: 2005
  5. CHAMPIX [Suspect]
     Active Substance: VARENICLINE TARTRATE
     Indication: SMOKING CESSATION THERAPY
     Dosage: 1 DF, DAILY
     Dates: start: 2013

REACTIONS (1)
  - Oral disorder [Unknown]
